FAERS Safety Report 17402442 (Version 1)
Quarter: 2020Q1

REPORT INFORMATION
  Report Type: Spontaneous
  Country: US (occurrence: US)
  Receive Date: 20200211
  Receipt Date: 20200211
  Transmission Date: 20200409
  Serious: Yes (Other)
  Sender: FDA-Public Use
  Company Number: US-SA-2020SA035166

PATIENT
  Age: 62 Year
  Sex: Female

DRUGS (3)
  1. ASPIRINE [Suspect]
     Active Substance: ASPIRIN
     Dosage: UNK
     Route: 065
  2. PLAVIX [Suspect]
     Active Substance: CLOPIDOGREL BISULFATE
     Dosage: UNK
     Route: 065
  3. ELIQUIS [Concomitant]
     Active Substance: APIXABAN
     Dosage: UNK
     Route: 065

REACTIONS (2)
  - Haemorrhage [Recovered/Resolved]
  - Contusion [Not Recovered/Not Resolved]
